FAERS Safety Report 20939375 (Version 1)
Quarter: 2022Q2

REPORT INFORMATION
  Report Type: Spontaneous
  Country: US (occurrence: None)
  Receive Date: 20220608
  Receipt Date: 20220608
  Transmission Date: 20220720
  Serious: Yes (Hospitalization)
  Sender: FDA-Public Use
  Company Number: None

PATIENT
  Age: 39 Year
  Sex: Male

DRUGS (1)
  1. CAPECITABINE [Suspect]
     Active Substance: CAPECITABINE
     Dosage: FREQUENCY : TWICE A DAY;?
     Route: 048
     Dates: start: 20220530, end: 20220604

REACTIONS (4)
  - Fatigue [None]
  - Pyrexia [None]
  - Large intestine perforation [None]
  - Therapy interrupted [None]

NARRATIVE: CASE EVENT DATE: 20220604
